FAERS Safety Report 21305550 (Version 2)
Quarter: 2022Q3

REPORT INFORMATION
  Report Type: Spontaneous
  Country: US (occurrence: US)
  Receive Date: 20220908
  Receipt Date: 20220916
  Transmission Date: 20221027
  Serious: Yes (Hospitalization, Other)
  Sender: FDA-Public Use
  Company Number: US-AUROBINDO-AUR-APL-2022-035351

PATIENT
  Age: 31 Year
  Sex: Female

DRUGS (30)
  1. METHADONE [Suspect]
     Active Substance: METHADONE HYDROCHLORIDE
     Indication: Drug use disorder
     Dosage: 150 MILLIGRAM, ONCE A DAY ((IN SPLIT DOSES THREE TIMES DAILY).
     Route: 048
  2. METHADONE [Suspect]
     Active Substance: METHADONE HYDROCHLORIDE
     Dosage: 50 MILLIGRAM, ONCE A DAY
     Route: 065
  3. METHADONE [Suspect]
     Active Substance: METHADONE HYDROCHLORIDE
     Dosage: 40 MILLIGRAM, TWO TIMES A DAY
     Route: 065
  4. METHADONE [Suspect]
     Active Substance: METHADONE HYDROCHLORIDE
     Dosage: 30 MILLIGRAM, ONCE A DAY
     Route: 065
  5. METHADONE [Suspect]
     Active Substance: METHADONE HYDROCHLORIDE
     Dosage: 30 MILLIGRAM, TWO TIMES A DAY
     Route: 065
  6. METHADONE [Suspect]
     Active Substance: METHADONE HYDROCHLORIDE
     Dosage: 20 MILLIGRAM, TWO TIMES A DAY
     Route: 065
  7. METHADONE [Suspect]
     Active Substance: METHADONE HYDROCHLORIDE
     Dosage: 10 MILLIGRAM, 3 TIMES A DAY
     Route: 065
  8. BUPRENORPHINE AND NALOXONE [Concomitant]
     Active Substance: BUPRENORPHINE HYDROCHLORIDE\NALOXONE HYDROCHLORIDE
     Indication: Drug use disorder
     Dosage: UNK
     Route: 065
  9. DEXMEDETOMIDINE [Concomitant]
     Active Substance: DEXMEDETOMIDINE
     Indication: Sedation
     Dosage: UNK
     Route: 065
  10. FENTANYL [Concomitant]
     Active Substance: FENTANYL
     Indication: Sedation
     Dosage: 175?300 MCG/H
     Route: 041
  11. FENTANYL [Concomitant]
     Active Substance: FENTANYL
     Dosage: 225?350 MCG/H
     Route: 041
  12. HYDROMORPHONE [Concomitant]
     Active Substance: HYDROMORPHONE
     Indication: Postoperative analgesia
     Dosage: 5 MILLIGRAM
     Route: 042
  13. HYDROMORPHONE [Concomitant]
     Active Substance: HYDROMORPHONE
     Dosage: 10.95 MILLIGRAM
     Route: 042
  14. HYDROMORPHONE [Concomitant]
     Active Substance: HYDROMORPHONE
     Dosage: 25.3 MILLIGRAM
     Route: 042
  15. HYDROMORPHONE [Concomitant]
     Active Substance: HYDROMORPHONE
     Dosage: 39 MILLIGRAM
     Route: 042
  16. HYDROMORPHONE [Concomitant]
     Active Substance: HYDROMORPHONE
     Dosage: 75.5 MILLIGRAM
     Route: 042
  17. HYDROMORPHONE [Concomitant]
     Active Substance: HYDROMORPHONE
     Dosage: 36.55 MILLIGRAM
     Route: 042
  18. HYDROMORPHONE [Concomitant]
     Active Substance: HYDROMORPHONE
     Dosage: 35.4 MILLIGRAM
     Route: 042
  19. HYDROMORPHONE [Concomitant]
     Active Substance: HYDROMORPHONE
     Dosage: 9 MILLIGRAM
     Route: 042
  20. OXYCODONE [Concomitant]
     Active Substance: OXYCODONE
     Indication: Product used for unknown indication
     Dosage: 50 MILLIGRAM
     Route: 065
  21. OXYCODONE [Concomitant]
     Active Substance: OXYCODONE
     Dosage: 60 MILLIGRAM
     Route: 065
  22. OXYCODONE [Concomitant]
     Active Substance: OXYCODONE
     Dosage: 40 MILLIGRAM
     Route: 065
  23. BUPRENORPHINE [Concomitant]
     Active Substance: BUPRENORPHINE
     Indication: Product used for unknown indication
     Dosage: 20 MICROGRAM/HOUR
     Route: 065
  24. BUPRENORPHINE [Concomitant]
     Active Substance: BUPRENORPHINE
     Dosage: 40 MICROGRAM/HOUR
     Route: 065
  25. BUPRENORPHINE [Concomitant]
     Active Substance: BUPRENORPHINE
     Dosage: 1 MILLIGRAM, 3 TIMES A DAY
     Route: 060
  26. BUPRENORPHINE [Concomitant]
     Active Substance: BUPRENORPHINE
     Dosage: 2 MILLIGRAM, 3 TIMES A DAY
     Route: 060
  27. BUPRENORPHINE [Concomitant]
     Active Substance: BUPRENORPHINE
     Dosage: 3 MILLIGRAM, 3 TIMES A DAY
     Route: 060
  28. BUPRENORPHINE [Concomitant]
     Active Substance: BUPRENORPHINE
     Dosage: 4 MILLIGRAM, 3 TIMES A DAY
     Route: 060
  29. BUPRENORPHINE [Concomitant]
     Active Substance: BUPRENORPHINE
     Dosage: 4 MILLIGRAM, FOUR TIMES/DAY
     Route: 065
  30. BUPRENORPHINE [Concomitant]
     Active Substance: BUPRENORPHINE
     Dosage: 4 MILLIGRAM, TWO TIMES A DAY
     Route: 065

REACTIONS (4)
  - Colitis ischaemic [Unknown]
  - Abdominal pain [Unknown]
  - Constipation [Unknown]
  - Electrocardiogram QT prolonged [Unknown]
